FAERS Safety Report 25278337 (Version 6)
Quarter: 2025Q4

REPORT INFORMATION
  Report Type: Spontaneous
  Country: EU (occurrence: EU)
  Receive Date: 20250507
  Receipt Date: 20251218
  Transmission Date: 20260118
  Serious: Yes (Death, Life-Threatening, Hospitalization, Other)
  Sender: AUROBINDO
  Company Number: EU-AFSSAPS-RN2025000351

PATIENT
  Age: 59 Year
  Sex: Female
  Weight: 67.5 kg

DRUGS (12)
  1. MIRTAZAPINE [Suspect]
     Active Substance: MIRTAZAPINE
     Indication: Depression
     Dosage: 1350 MILLIGRAM TOTAL (1350 MG)
     Route: 061
     Dates: start: 20230411, end: 20230411
  2. ZOPICLONE [Suspect]
     Active Substance: ZOPICLONE
     Indication: Sleep disorder
     Dosage: 105 MILLIGRAM TOTAL (105 MG)
     Route: 061
     Dates: start: 20230411, end: 20230411
  3. ZOPICLONE [Suspect]
     Active Substance: ZOPICLONE
     Dosage: 7.5 MILLIGRAM (7.5 MG ONCE A DAY PER OS, TABLETS)
     Route: 061
  4. OXAZEPAM [Suspect]
     Active Substance: OXAZEPAM
     Indication: Anxiety disorder
     Dosage: 11000 MILLIGRAM
     Route: 061
     Dates: start: 20230411, end: 20230411
  5. ACETAMINOPHEN [Suspect]
     Active Substance: ACETAMINOPHEN
     Indication: Product used for unknown indication
     Dosage: 38000 MILLIGRAM
     Route: 061
     Dates: start: 20230411, end: 20230411
  6. VENLAFAXINE [Suspect]
     Active Substance: VENLAFAXINE HYDROCHLORIDE
     Indication: Depression
     Dosage: 150 MILLIGRAM
     Route: 061
  7. OXAZEPAM [Suspect]
     Active Substance: OXAZEPAM
     Indication: Product used for unknown indication
     Dosage: 11 GRAM TOTAL (11 G)
     Route: 061
     Dates: start: 20230411, end: 20230411
  8. MIDAZOLAM [Concomitant]
     Active Substance: MIDAZOLAM
     Indication: Sedation
     Dosage: UNK
     Route: 065
  9. SUFENTANIL [Concomitant]
     Active Substance: SUFENTANIL
     Indication: Sedation
     Dosage: UNK
     Route: 065
  10. ERYTHROMYCIN [Concomitant]
     Active Substance: ERYTHROMYCIN
     Indication: Product used for unknown indication
     Dosage: UNK
     Route: 065
  11. DOLASETRON [Concomitant]
     Active Substance: DOLASETRON
     Indication: Product used for unknown indication
     Dosage: UNK
     Route: 065
  12. DROPERIDOL [Concomitant]
     Active Substance: DROPERIDOL
     Indication: Product used for unknown indication
     Dosage: UNK
     Route: 065

REACTIONS (13)
  - Coma [Fatal]
  - Multiple organ dysfunction syndrome [Fatal]
  - Completed suicide [Fatal]
  - Acute respiratory distress syndrome [Fatal]
  - Shock [Fatal]
  - Hypothermia [Fatal]
  - Miosis [Fatal]
  - Serotonin syndrome [Fatal]
  - Bezoar [Fatal]
  - Electrocardiogram QT prolonged [Fatal]
  - Intentional overdose [Fatal]
  - Toxicity to various agents [Fatal]
  - Diarrhoea [Fatal]

NARRATIVE: CASE EVENT DATE: 20230411
